FAERS Safety Report 4283877-2 (Version None)
Quarter: 2004Q1

REPORT INFORMATION
  Report Type: 
  Country: None (occurrence: None)
  Receive Date: 20040130
  Receipt Date: 20040122
  Transmission Date: 20041129
  Serious: Yes (Death)
  Sender: FDA-Public Use
  Company Number: THQ2004A00142

PATIENT
  Age: 93 Year
  Sex: Female

DRUGS (1)
  1. PIOGLITAZONE HCL [Suspect]

REACTIONS (1)
  - PANCREATIC CARCINOMA [None]
